FAERS Safety Report 6838266-0 (Version None)
Quarter: 2010Q3

REPORT INFORMATION
  Report Type: 
  Country: None (occurrence: None)
  Receive Date: 20100713
  Receipt Date: 20070604
  Transmission Date: 20110219
  Serious: No
  Sender: FDA-Public Use
  Company Number: US-PFIZER INC-2007047498

PATIENT
  Sex: Male
  Weight: 90.909 kg

DRUGS (3)
  1. CHANTIX [Suspect]
     Indication: SMOKING CESSATION THERAPY
     Dates: start: 20070501, end: 20070529
  2. CIPROFLOXACIN [Suspect]
     Indication: SINUSITIS
     Dates: start: 20070101
  3. MONTELUKAST SODIUM [Suspect]
     Dates: start: 20070101

REACTIONS (1)
  - PRURITUS [None]
